FAERS Safety Report 8372602-1 (Version None)
Quarter: 2012Q2

REPORT INFORMATION
  Report Type: 
  Country: None (occurrence: None)
  Receive Date: 20120521
  Receipt Date: 20120516
  Transmission Date: 20120825
  Serious: Yes (Hospitalization, Other)
  Sender: FDA-Public Use
  Company Number: PHHY2012CH041983

PATIENT
  Age: 34 Year
  Sex: Female
  Weight: 73 kg

DRUGS (15)
  1. DEXAMETHASONE [Suspect]
     Dosage: 40 MG, QW
     Route: 042
     Dates: start: 20101126
  2. PREDNISONE [Suspect]
     Dosage: 15 MG, DAILY
     Route: 048
     Dates: start: 20110131, end: 20110501
  3. REVLIMID [Suspect]
     Dates: start: 20110131
  4. DEXAMETHASONE [Suspect]
     Indication: MULTIPLE MYELOMA
     Dosage: 1 DF, UNK
     Route: 042
     Dates: start: 20100201, end: 20100401
  5. VELCADE [Concomitant]
     Dosage: 1 DF, INTRAVENOUS BOLUS (3 IN TOTAL)
     Dates: start: 20100201, end: 20100401
  6. PANTOPRAZOLE [Concomitant]
     Dosage: 20 MG, BID
     Route: 048
  7. IMPLANON [Concomitant]
     Dosage: 1 DF, UNK
     Route: 058
     Dates: start: 20110101
  8. VALTREX [Concomitant]
     Dosage: 500 MG, BID
     Route: 048
  9. NOPIL [Concomitant]
     Dosage: 1 DF, QW3
     Route: 048
  10. DIFLUCAN [Concomitant]
     Dosage: 200 MG, QW2
     Route: 048
  11. ZOMETA [Suspect]
     Indication: MULTIPLE MYELOMA
     Dosage: 1 DF, EVERY 4 WEEKS
     Route: 042
     Dates: start: 20100401, end: 20110201
  12. PREDNISONE [Suspect]
     Dosage: 2.5 MG, DAILY
     Route: 048
     Dates: start: 20110501
  13. ZOMETA [Suspect]
     Dosage: 1 DF, EVERY 4 WEEKS
     Route: 042
     Dates: start: 20110501, end: 20120406
  14. REVLIMID [Suspect]
     Indication: MULTIPLE MYELOMA
     Dosage: 25 MG ORAL 21 PER 1 CYCLIC
     Route: 048
     Dates: start: 20101126, end: 20110105
  15. THALIDOMIDE [Concomitant]
     Dates: start: 20100201, end: 20100401

REACTIONS (2)
  - TRANSPLANT REJECTION [None]
  - OSTEONECROSIS OF JAW [None]
